FAERS Safety Report 4984564-5 (Version None)
Quarter: 2006Q2

REPORT INFORMATION
  Report Type: 
  Country: None (occurrence: None)
  Receive Date: 20060427
  Receipt Date: 20051005
  Transmission Date: 20061013
  Serious: No
  Sender: FDA-Public Use
  Company Number: S2005US15155

PATIENT
  Age: 10 Year
  Sex: Male

DRUGS (1)
  1. DEXEDRINE [Suspect]
     Indication: ATTENTION DEFICIT/HYPERACTIVITY DISORDER
     Route: 048

REACTIONS (1)
  - DRUG INEFFECTIVE [None]
